FAERS Safety Report 7117401-3 (Version None)
Quarter: 2010Q4

REPORT INFORMATION
  Report Type: 
  Country: None (occurrence: None)
  Receive Date: 20101122
  Receipt Date: 20101110
  Transmission Date: 20110411
  Serious: Yes (Other)
  Sender: FDA-Public Use
  Company Number: PHHY2010US34008

PATIENT
  Sex: Male
  Weight: 88.889 kg

DRUGS (4)
  1. EXJADE [Suspect]
     Indication: MYELODYSPLASTIC SYNDROME
     Dosage: 1750 MG DAILY
     Route: 048
     Dates: start: 20100501
  2. EXJADE [Suspect]
     Indication: CHELATION THERAPY
     Dosage: 1750 MG/DAY
     Route: 048
     Dates: start: 20100705
  3. VIDAZA [Concomitant]
     Indication: MYELODYSPLASTIC SYNDROME
     Dosage: 150 MG DAILY
     Route: 058
  4. VIDAZA [Concomitant]
     Dosage: 150 MG DAILY
     Route: 058
     Dates: start: 20100307

REACTIONS (2)
  - NAUSEA [None]
  - TRANSPLANT [None]
